FAERS Safety Report 14331282 (Version 3)
Quarter: 2018Q1

REPORT INFORMATION
  Report Type: Report from Study
  Country: None (occurrence: US)
  Receive Date: 20171228
  Receipt Date: 20180201
  Transmission Date: 20180509
  Serious: Yes (Hospitalization)
  Sender: FDA-Public Use
  Company Number: US-ABBVIE-17K-163-2206256-00

PATIENT
  Age: 69 Year
  Sex: Female
  Weight: 79.45 kg

DRUGS (2)
  1. HUMIRA [Suspect]
     Active Substance: ADALIMUMAB
     Indication: HIDRADENITIS
     Route: 058
     Dates: start: 20170608, end: 20171214
  2. PANTOPRAZOLE [Concomitant]
     Active Substance: PANTOPRAZOLE
     Indication: PRODUCT USED FOR UNKNOWN INDICATION

REACTIONS (12)
  - Non-alcoholic steatohepatitis [Recovering/Resolving]
  - Oedema peripheral [Not Recovered/Not Resolved]
  - Ammonia increased [Recovered/Resolved]
  - Fatigue [Recovering/Resolving]
  - Incoherent [Recovered/Resolved]
  - Intra-abdominal fluid collection [Recovering/Resolving]
  - Sepsis [Not Recovered/Not Resolved]
  - Pneumonia [Recovered/Resolved]
  - Blood potassium decreased [Unknown]
  - Dermatitis [Not Recovered/Not Resolved]
  - Loss of consciousness [Recovered/Resolved]
  - Varices oesophageal [Recovered/Resolved]

NARRATIVE: CASE EVENT DATE: 2017
